FAERS Safety Report 9645961 (Version 2)
Quarter: 2013Q4

REPORT INFORMATION
  Report Type: Spontaneous
  Country: BR (occurrence: BR)
  Receive Date: 20131025
  Receipt Date: 20131125
  Transmission Date: 20140711
  Serious: Yes (Hospitalization)
  Sender: FDA-Public Use
  Company Number: BR-JNJFOC-20131012534

PATIENT
  Sex: Male
  Weight: 90 kg

DRUGS (3)
  1. REMICADE [Suspect]
     Indication: CROHN^S DISEASE
     Route: 050
  2. REMICADE [Suspect]
     Indication: CROHN^S DISEASE
     Route: 050
     Dates: start: 2011
  3. VITAMINS NOS [Concomitant]
     Route: 065

REACTIONS (5)
  - Nephrolithiasis [Unknown]
  - Malaise [Unknown]
  - Red blood cell sedimentation rate abnormal [Unknown]
  - C-reactive protein abnormal [Unknown]
  - Incorrect route of drug administration [Unknown]
